FAERS Safety Report 7034057-9 (Version None)
Quarter: 2010Q4

REPORT INFORMATION
  Report Type: 
  Country: None (occurrence: None)
  Receive Date: 20101006
  Receipt Date: 20100922
  Transmission Date: 20110411
  Serious: Yes (Other)
  Sender: FDA-Public Use
  Company Number: 2010-0589

PATIENT
  Age: 48 Year
  Sex: Female
  Weight: 71 kg

DRUGS (4)
  1. SOMATULINE PR (SOMATULINE SR) (LANREOTIDE) (LANREOTIDE ACETATE) [Suspect]
     Indication: ACROMEGALY
     Dosage: 30 MG (30 MG, 1 IN 14 D), INTRAMUSCULAR
     Route: 030
     Dates: start: 20080301, end: 20090301
  2. SOMATULINE PR (SOMATULINE SR) (LANREOTIDE) (LANREOTIDE ACETATE) [Suspect]
     Indication: ACROMEGALY
     Dosage: 30 MG (30 MG, 1 IN 14 D), INTRAMUSCULAR
     Route: 030
     Dates: start: 20090901
  3. LEVOTHYROXINE SODIUM [Concomitant]
  4. BROMOCRIPTINE MESYLATE [Concomitant]

REACTIONS (1)
  - INJECTION SITE NODULE [None]
